FAERS Safety Report 15623429 (Version 1)
Quarter: 2018Q4

REPORT INFORMATION
  Report Type: Spontaneous
  Country: US (occurrence: US)
  Receive Date: 20181115
  Receipt Date: 20181115
  Transmission Date: 20190205
  Serious: Yes (Hospitalization)
  Sender: FDA-Public Use
  Company Number: None

PATIENT
  Age: 55 Year
  Sex: Male

DRUGS (13)
  1. ASPIRIN. [Concomitant]
     Active Substance: ASPIRIN
  2. PRILOSEC OTC [Concomitant]
     Active Substance: OMEPRAZOLE MAGNESIUM
  3. FUROSEMIDE. [Concomitant]
     Active Substance: FUROSEMIDE
  4. HUMIRA [Concomitant]
     Active Substance: ADALIMUMAB
  5. CYANOCOBALAM [Concomitant]
     Active Substance: CYANOCOBALAMIN
  6. LISINOPRIL. [Concomitant]
     Active Substance: LISINOPRIL
  7. FISH OIL [Concomitant]
     Active Substance: FISH OIL
  8. NOVOLOG [Concomitant]
     Active Substance: INSULIN ASPART
  9. SIMVASTATIN. [Concomitant]
     Active Substance: SIMVASTATIN
  10. VITAMIN D3 [Concomitant]
     Active Substance: CHOLECALCIFEROL
  11. TESTOPEL [Suspect]
     Active Substance: TESTOSTERONE
     Indication: TESTICULAR FAILURE
     Dosage: ?          OTHER FREQUENCY:Q 4-6 MNTS;?
     Route: 058
     Dates: start: 20180410
  12. METFORMIN [Concomitant]
     Active Substance: METFORMIN HYDROCHLORIDE
  13. LYRICA [Concomitant]
     Active Substance: PREGABALIN

REACTIONS (1)
  - Hypertension [None]

NARRATIVE: CASE EVENT DATE: 20181026
